FAERS Safety Report 23242551 (Version 1)
Quarter: 2023Q4

REPORT INFORMATION
  Report Type: Spontaneous
  Country: US (occurrence: None)
  Receive Date: 20231129
  Receipt Date: 20231129
  Transmission Date: 20240109
  Serious: Yes (Hospitalization, Other)
  Sender: FDA-Public Use
  Company Number: None

PATIENT
  Age: 60 Year
  Sex: Male
  Weight: 89.8 kg

DRUGS (2)
  1. VARENICLINE [Suspect]
     Active Substance: VARENICLINE
     Indication: Ex-tobacco user
     Dosage: FREQUENCY : TWICE A DAY;?
     Route: 048
     Dates: start: 20231102, end: 20231120
  2. GABAPENTIN [Suspect]
     Active Substance: GABAPENTIN
     Dates: start: 20231102

REACTIONS (3)
  - Seizure [None]
  - Road traffic accident [None]
  - Amnesia [None]

NARRATIVE: CASE EVENT DATE: 20231120
